FAERS Safety Report 8237347-7 (Version None)
Quarter: 2012Q1

REPORT INFORMATION
  Report Type: 
  Country: None (occurrence: None)
  Receive Date: 20120323
  Receipt Date: 20120308
  Transmission Date: 20120608
  Serious: Yes (Disabling)
  Sender: FDA-Public Use
  Company Number: 2012MPI00107

PATIENT
  Age: 34 Year
  Sex: Female

DRUGS (2)
  1. BRENTUXIMAB VEDOTIN (BRENTUXIMAB VEDOTIN) INJECTION [Suspect]
     Indication: HODGKIN'S DISEASE REFRACTORY
     Dosage: 1.8 MG/KG, Q21D, INTRAVENOUS
     Route: 042
     Dates: start: 20110308, end: 20110517
  2. LEVOTHYROXINE SODIUM [Concomitant]

REACTIONS (6)
  - ASTHENIA [None]
  - LUNG DISORDER [None]
  - PAIN [None]
  - HYPOTHYROIDISM [None]
  - DYSPNOEA [None]
  - TACHYCARDIA [None]
